FAERS Safety Report 4995926-4 (Version None)
Quarter: 2006Q2

REPORT INFORMATION
  Report Type: 
  Country: None (occurrence: None)
  Receive Date: 20060508
  Receipt Date: 20051031
  Transmission Date: 20061013
  Serious: Yes (Hospitalization, Disabling)
  Sender: FDA-Public Use
  Company Number: US-MERCK-0511USA00261

PATIENT
  Age: 52 Year
  Sex: Female
  Weight: 97 kg

DRUGS (10)
  1. VIOXX [Suspect]
     Indication: ARTHRITIS
     Route: 048
     Dates: start: 20010901, end: 20041001
  2. FOSAMAX [Concomitant]
     Indication: OSTEOPOROSIS
     Route: 065
  3. VERAPAMIL [Concomitant]
     Indication: MIGRAINE
     Route: 065
     Dates: start: 19950101
  4. EFFEXOR [Concomitant]
     Indication: DEPRESSION
     Route: 065
  5. CLONIDINE [Concomitant]
     Route: 065
  6. CYCLOBENZAPRINE HYDROCHLORIDE [Concomitant]
     Indication: MUSCLE SPASMS
     Route: 065
     Dates: start: 20030201, end: 20030301
  7. PREMARIN [Concomitant]
     Indication: HORMONE REPLACEMENT THERAPY
     Route: 065
     Dates: start: 19860101, end: 20030301
  8. ULTRACET [Concomitant]
     Route: 065
     Dates: start: 20030201, end: 20030201
  9. SKELAXIN [Concomitant]
     Indication: PAIN
     Route: 065
     Dates: start: 20030201, end: 20030201
  10. METHOCARBAMOL [Concomitant]
     Indication: PAIN
     Route: 065
     Dates: start: 20030201, end: 20030201

REACTIONS (7)
  - ANXIETY [None]
  - CARPAL TUNNEL SYNDROME [None]
  - CHEST PAIN [None]
  - DEEP VEIN THROMBOSIS [None]
  - FIBROMYALGIA [None]
  - HEADACHE [None]
  - SLEEP APNOEA SYNDROME [None]
